FAERS Safety Report 5227696-9 (Version None)
Quarter: 2007Q1

REPORT INFORMATION
  Report Type: 
  Country: None (occurrence: None)
  Receive Date: 20070202
  Receipt Date: 20070125
  Transmission Date: 20070707
  Serious: Yes (Hospitalization)
  Sender: FDA-Public Use
  Company Number: MW-GILEAD-2007-0011113

PATIENT
  Sex: Female
  Weight: 54.1 kg

DRUGS (6)
  1. TENOFOVIR DISOPROXIL FUMARATE [Suspect]
     Indication: HIV INFECTION
     Route: 048
     Dates: start: 20061128, end: 20070109
  2. EMTRICITABINE [Suspect]
     Indication: HIV INFECTION
     Route: 048
     Dates: start: 20061128, end: 20070109
  3. EFAVIRENZ [Concomitant]
     Indication: HIV INFECTION
     Route: 048
     Dates: start: 20061128, end: 20070109
  4. CIPROFLOXACIN HCL [Concomitant]
  5. COTRIM [Concomitant]
  6. GRISEOFULVIN [Concomitant]

REACTIONS (12)
  - ANAEMIA [None]
  - BLOOD ALBUMIN DECREASED [None]
  - BLOOD CREATININE INCREASED [None]
  - BLOOD PHOSPHORUS INCREASED [None]
  - BLOOD POTASSIUM DECREASED [None]
  - BLOOD SODIUM DECREASED [None]
  - CARBON DIOXIDE DECREASED [None]
  - GASTROENTERITIS SHIGELLA [None]
  - HEADACHE [None]
  - HEPATOMEGALY [None]
  - RENAL FAILURE [None]
  - SEPSIS [None]
